FAERS Safety Report 5976084-6 (Version None)
Quarter: 2008Q4

REPORT INFORMATION
  Report Type: 
  Country: None (occurrence: None)
  Receive Date: 20081202
  Receipt Date: 20081120
  Transmission Date: 20090506
  Serious: Yes (Hospitalization)
  Sender: FDA-Public Use
  Company Number: DK-CELGENEUS-044-20484-08111132

PATIENT
  Sex: Male

DRUGS (3)
  1. INNOHEP [Suspect]
     Indication: THROMBOSIS PROPHYLAXIS
     Route: 058
  2. MAREVAN [Concomitant]
     Indication: ATRIAL FLUTTER
     Route: 065
  3. MAREVAN [Concomitant]

REACTIONS (2)
  - DRUG PRESCRIBING ERROR [None]
  - OVERDOSE [None]
